FAERS Safety Report 5584558-5 (Version None)
Quarter: 2008Q1

REPORT INFORMATION
  Report Type: 
  Country: None (occurrence: None)
  Receive Date: 20080103
  Receipt Date: 20071226
  Transmission Date: 20080703
  Serious: Yes (Other)
  Sender: FDA-Public Use
  Company Number: 2007335173

PATIENT
  Sex: Female
  Weight: 106 kg

DRUGS (2)
  1. LISTERINE         (MENTHOL, METHYL SALICYLATE, EUCALYPTOL, THYMOL) [Suspect]
     Indication: DENTAL DISORDER PROPHYLAXIS
     Dosage: ONE CAP TWICE DAILY, ORAL
     Route: 048
  2. MAREVAN                    ^BRITISH DRUG HOUSES^ (WARFARIN SODIUM) [Concomitant]

REACTIONS (5)
  - DYSGEUSIA [None]
  - HYPERTENSION [None]
  - ORAL DISCOMFORT [None]
  - PAIN IN EXTREMITY [None]
  - THROMBOSIS [None]
